FAERS Safety Report 10678107 (Version 2)
Quarter: 2015Q3

REPORT INFORMATION
  Report Type: Spontaneous
  Country: US (occurrence: None)
  Receive Date: 20141223
  Receipt Date: 20150714
  Transmission Date: 20151125
  Serious: Yes (Hospitalization)
  Sender: FDA-Public Use
  Company Number: US-H14001-14-01829

PATIENT
  Age: 41 Year
  Sex: Male

DRUGS (9)
  1. URSODIOL(UROSDEOXYCHLOIC ACID) [Concomitant]
  2. LISINOPRIL(LISINOPRIL) [Suspect]
     Active Substance: LISINOPRIL
     Indication: PROTEINURIA
  3. SIROLIMUS. [Suspect]
     Active Substance: SIROLIMUS
     Indication: PROPHYLAXIS AGAINST GRAFT VERSUS HOST DISEASE
  4. CHOLECALCIFEROL(COLECALCIFEROL) [Concomitant]
  5. FOLATE (FOLIC ACID) [Concomitant]
  6. ALEMTUZUMAB(ALEMTUZUMAB) [Concomitant]
  7. NYSTATIN(NYSTATIN) [Concomitant]
  8. VANCOMYCIN(VANCOMYCIN) [Concomitant]
  9. ACYCLOVIR(ACICLOVIR) [Concomitant]

REACTIONS (4)
  - Drug interaction [None]
  - Post procedural complication [None]
  - Angioedema [None]
  - Immunosuppressant drug level increased [None]
